FAERS Safety Report 24591398 (Version 2)
Quarter: 2025Q3

REPORT INFORMATION
  Report Type: Spontaneous
  Country: ZA (occurrence: ZA)
  Receive Date: 20241108
  Receipt Date: 20250809
  Transmission Date: 20251020
  Serious: Yes (Hospitalization, Other)
  Sender: ALEXION PHARMACEUTICALS
  Company Number: ZA-AstraZeneca-CH-00728681A

PATIENT
  Age: 80 Year
  Sex: Male

DRUGS (4)
  1. DAPAGLIFLOZIN PROPANEDIOL [Suspect]
     Active Substance: DAPAGLIFLOZIN PROPANEDIOL
     Indication: Type 2 diabetes mellitus
  2. Spiractin [Concomitant]
  3. Stopayne [Concomitant]
  4. PREGABALIN [Concomitant]
     Active Substance: PREGABALIN

REACTIONS (2)
  - Myocardial infarction [Unknown]
  - Coronary vein stenosis [Unknown]
